FAERS Safety Report 5896351-4 (Version None)
Quarter: 2008Q3

REPORT INFORMATION
  Report Type: 
  Country: None (occurrence: None)
  Receive Date: 20080924
  Receipt Date: 20070913
  Transmission Date: 20090109
  Serious: Yes (Hospitalization)
  Sender: FDA-Public Use
  Company Number: US-ASTRAZENECA-2007UW21777

PATIENT
  Age: 40 Year
  Sex: Female

DRUGS (1)
  1. SEROQUEL [Suspect]
     Indication: BIPOLAR DISORDER
     Dosage: 500-600 MG
     Route: 048

REACTIONS (4)
  - AGGRESSION [None]
  - HALLUCINATION [None]
  - HOSTILITY [None]
  - SUICIDAL IDEATION [None]
